FAERS Safety Report 11746668 (Version 1)
Quarter: 2015Q4

REPORT INFORMATION
  Report Type: Spontaneous
  Country: US (occurrence: None)
  Receive Date: 20151116
  Receipt Date: 20151116
  Transmission Date: 20160304
  Serious: No
  Sender: FDA-Public Use
  Company Number: None

PATIENT
  Age: 57 Year
  Sex: Male

DRUGS (2)
  1. SOVALDI [Suspect]
     Active Substance: SOFOSBUVIR
     Indication: HEPATITIS C
     Dosage: 1 TABLET QD ORAL
     Route: 048
     Dates: start: 20150916, end: 20151113
  2. DAKLINZA [Suspect]
     Active Substance: DACLATASVIR
     Indication: HEPATITIS C
     Dosage: 1 TABLET QD ORAL
     Route: 048
     Dates: start: 20150916, end: 20151113

REACTIONS (1)
  - Fatigue [None]

NARRATIVE: CASE EVENT DATE: 20150916
